FAERS Safety Report 5451025-9 (Version None)
Quarter: 2007Q3

REPORT INFORMATION
  Report Type: 
  Country: None (occurrence: None)
  Receive Date: 20070911
  Receipt Date: 20070830
  Transmission Date: 20080115
  Serious: Yes (Other)
  Sender: FDA-Public Use
  Company Number: CHNY2007DO03047

PATIENT
  Sex: Female

DRUGS (1)
  1. EX-LAX (NCH)(SENNA GLYCOSIDES (CA SALTS OF PURIFIED SENNA EXTRACT)) UN [Suspect]
     Dosage: 2 PILLS, ORAL
     Route: 048
     Dates: start: 20070829, end: 20070829

REACTIONS (2)
  - DRUG EXPOSURE DURING PREGNANCY [None]
  - HAEMORRHAGE [None]
